FAERS Safety Report 5105879-6 (Version None)
Quarter: 2006Q3

REPORT INFORMATION
  Report Type: 
  Country: None (occurrence: None)
  Receive Date: 20060915
  Receipt Date: 20060905
  Transmission Date: 20061208
  Serious: Yes (Hospitalization)
  Sender: FDA-Public Use
  Company Number: FR-GLAXOSMITHKLINE-B0437933A

PATIENT
  Age: 2 Year
  Sex: Male
  Weight: 12 kg

DRUGS (5)
  1. ZOPHREN [Suspect]
     Dosage: 4MG PER DAY
     Route: 042
     Dates: start: 20060714, end: 20060714
  2. ONCOVIN [Suspect]
     Indication: NEPHROBLASTOMA
     Dosage: .8MG PER DAY
     Route: 042
     Dates: start: 20060714, end: 20060714
  3. COSMEGEN [Suspect]
     Indication: NEPHROBLASTOMA
     Dosage: 540MCG PER DAY
     Route: 042
     Dates: start: 20060714, end: 20060714
  4. LOXEN [Suspect]
     Dosage: 1MG PER DAY
     Route: 042
     Dates: start: 20060714, end: 20060714
  5. TRANDATE [Suspect]
     Dosage: 1MG PER DAY
     Route: 042
     Dates: start: 20060714, end: 20060714

REACTIONS (4)
  - ERYTHEMA [None]
  - EXTRAVASATION [None]
  - INJECTION SITE OEDEMA [None]
  - OEDEMA PERIPHERAL [None]
